FAERS Safety Report 6507165-6 (Version None)
Quarter: 2009Q4

REPORT INFORMATION
  Report Type: 
  Country: None (occurrence: None)
  Receive Date: 20091216
  Receipt Date: 20091211
  Transmission Date: 20100525
  Serious: Yes (Hospitalization)
  Sender: FDA-Public Use
  Company Number: 2009029226

PATIENT
  Age: 82 Year
  Sex: Male
  Weight: 80.2867 kg

DRUGS (4)
  1. TREANDA [Suspect]
     Indication: CHRONIC LYMPHOCYTIC LEUKAEMIA
     Dosage: (200 MG/M2,DAY 1 + DAY 2), INTRAVENOUS
     Route: 042
     Dates: start: 20090407, end: 20090408
  2. DIGOXIN [Concomitant]
  3. WARFARIN SODIUM [Concomitant]
  4. METOPROLOL (METOPROLOL) [Concomitant]

REACTIONS (1)
  - FLUID RETENTION [None]
